FAERS Safety Report 25960268 (Version 1)
Quarter: 2025Q4

REPORT INFORMATION
  Report Type: Spontaneous
  Country: US (occurrence: US)
  Receive Date: 20251026
  Receipt Date: 20251026
  Transmission Date: 20260118
  Serious: No
  Sender: ELI LILLY AND COMPANY
  Company Number: US-ELI_LILLY_AND_COMPANY-US202510013100

PATIENT

DRUGS (1)
  1. ZEPBOUND [Interacting]
     Active Substance: TIRZEPATIDE
     Indication: Product used for unknown indication
     Dosage: UNK, UNKNOWN
     Route: 065
     Dates: start: 202508

REACTIONS (4)
  - Feeling cold [Unknown]
  - Insomnia [Unknown]
  - Inhibitory drug interaction [Unknown]
  - Dyspepsia [Unknown]
